FAERS Safety Report 8176536-7 (Version None)
Quarter: 2012Q1

REPORT INFORMATION
  Report Type: 
  Country: None (occurrence: None)
  Receive Date: 20120301
  Receipt Date: 20120221
  Transmission Date: 20120608
  Serious: Yes (Other)
  Sender: FDA-Public Use
  Company Number: DZ-NOVOPROD-344194

PATIENT
  Age: 31 Year
  Sex: Female
  Weight: 69 kg

DRUGS (6)
  1. INSULATARD PENFILL [Suspect]
     Indication: TYPE 1 DIABETES MELLITUS
     Dosage: 1 INJECTION OF 06 UI
     Route: 058
  2. DAFLON                             /00426001/ [Concomitant]
     Dosage: 2 TAB, QD (DURING 2ND TRIMESTER OF PREGNANCY)
     Route: 048
  3. NOVORAPID FLEXPEN [Suspect]
     Indication: TYPE 1 DIABETES MELLITUS
     Dosage: 3 INJECTIONS OF 06 IU
     Route: 058
  4. ASPEGIC 1000 [Concomitant]
     Indication: PLATELET AGGREGATION INHIBITION
     Dosage: 100 MG, QD (BEFORE PREGNANCY STARTS)
     Route: 048
  5. APIDRA [Concomitant]
     Dosage: 14 U
     Route: 058
     Dates: start: 20101201
  6. LANTUS [Concomitant]
     Dosage: 10 U
     Route: 058
     Dates: start: 20101201

REACTIONS (3)
  - MATERNAL EXPOSURE DURING PREGNANCY [None]
  - FOETAL DEATH [None]
  - HYPOGLYCAEMIA [None]
